FAERS Safety Report 5675982-0 (Version None)
Quarter: 2008Q1

REPORT INFORMATION
  Report Type: 
  Country: None (occurrence: None)
  Receive Date: 20080321
  Receipt Date: 20080319
  Transmission Date: 20080703
  Serious: Yes (Life-Threatening, Hospitalization)
  Sender: FDA-Public Use
  Company Number: US-WYE-H03174208

PATIENT
  Sex: Female
  Weight: 55.84 kg

DRUGS (12)
  1. TORISEL [Suspect]
     Indication: PANCREATIC CARCINOMA METASTATIC
     Route: 042
     Dates: start: 20080227
  2. ATIVAN [Concomitant]
     Dosage: UNKNOWN
     Route: 065
     Dates: start: 20080225
  3. COLACE [Concomitant]
     Dosage: UNKNOWN
     Route: 065
     Dates: start: 20080116
  4. COMPAZINE [Concomitant]
     Dosage: UNKNOWN
     Route: 065
     Dates: start: 20080225
  5. ZOFRAN [Concomitant]
     Dosage: UNKNOWN
     Route: 065
     Dates: start: 20050225
  6. LASIX [Concomitant]
     Dosage: UNKNOWN
     Route: 065
     Dates: start: 20080312
  7. NADOLOL [Concomitant]
     Dosage: UNKNOWN
     Route: 065
     Dates: start: 20080312
  8. NICOTINE [Concomitant]
     Dosage: UNKNOWN
     Route: 062
     Dates: start: 20070108
  9. SPIRONOLACTONE [Concomitant]
     Dosage: UNKNOWN
     Route: 065
     Dates: start: 20080312
  10. TRAZODONE HCL [Concomitant]
     Dosage: UNKNOWN
     Route: 065
     Dates: start: 20080312
  11. GEMCITABINE [Suspect]
     Indication: PANCREATIC CARCINOMA METASTATIC
     Route: 042
     Dates: start: 20080227
  12. IBUPROFEN [Concomitant]
     Dosage: UNKNOWN
     Route: 065
     Dates: start: 20011218

REACTIONS (3)
  - NEUTROPENIA [None]
  - RASH ERYTHEMATOUS [None]
  - RASH PRURITIC [None]
